FAERS Safety Report 22393851 (Version 1)
Quarter: 2023Q2

REPORT INFORMATION
  Report Type: Spontaneous
  Country: US (occurrence: US)
  Receive Date: 20230601
  Receipt Date: 20230601
  Transmission Date: 20230721
  Serious: Yes (Life-Threatening)
  Sender: FDA-Public Use
  Company Number: US-ELI_LILLY_AND_COMPANY-US202305016415

PATIENT
  Sex: Female

DRUGS (1)
  1. TALTZ [Suspect]
     Active Substance: IXEKIZUMAB
     Indication: Product used for unknown indication
     Dosage: 160 MG, OTHER (INITIAL DOSE)
     Route: 058
     Dates: start: 202305, end: 202305

REACTIONS (3)
  - Hypoaesthesia oral [Unknown]
  - Dyspnoea [Unknown]
  - Rash [Unknown]
